FAERS Safety Report 19824322 (Version 2)
Quarter: 2021Q3

REPORT INFORMATION
  Report Type: Spontaneous
  Country: CN (occurrence: CN)
  Receive Date: 20210913
  Receipt Date: 20210917
  Transmission Date: 20211014
  Serious: Yes (Hospitalization, Other)
  Sender: FDA-Public Use
  Company Number: CN-009507513-2109CHN002861

PATIENT
  Age: 74 Year
  Sex: Male
  Weight: 62 kg

DRUGS (4)
  1. VANCOCIN [Suspect]
     Active Substance: VANCOMYCIN HYDROCHLORIDE
     Indication: ANTI-INFECTIVE THERAPY
     Dosage: 1 GRAM, Q12H
     Route: 041
     Dates: start: 20210712, end: 20210719
  2. MEPEM [MEROPENEM] [Suspect]
     Active Substance: MEROPENEM
     Indication: ANTI-INFECTIVE THERAPY
     Dosage: 1 GRAM, Q8H
     Route: 041
     Dates: start: 20210712, end: 20210719
  3. CANCIDAS [Suspect]
     Active Substance: CASPOFUNGIN ACETATE
     Indication: PNEUMOCYSTIS JIROVECII INFECTION
     Dosage: 50 MILLIGRAM, QD
     Route: 041
     Dates: start: 20210712, end: 20210725
  4. COMPOUND SULFAMETHOXAZOLE [Suspect]
     Active Substance: SULFAMETHOXAZOLE
     Indication: ANTI-INFECTIVE THERAPY
     Dosage: 1440 MILLIGRAM, Q6H
     Route: 048
     Dates: start: 20210712, end: 20210721

REACTIONS (7)
  - Neurotoxicity [Recovering/Resolving]
  - Disorganised speech [Recovering/Resolving]
  - Halo vision [Recovering/Resolving]
  - Movement disorder [Recovering/Resolving]
  - Mental disorder [Recovering/Resolving]
  - Disorientation [Recovering/Resolving]
  - Hallucination [Recovering/Resolving]

NARRATIVE: CASE EVENT DATE: 20210718
